FAERS Safety Report 9624726 (Version 2)
Quarter: 2013Q4

REPORT INFORMATION
  Report Type: Spontaneous
  Country: JP (occurrence: JP)
  Receive Date: 20131015
  Receipt Date: 20131015
  Transmission Date: 20140711
  Serious: Yes (Life-Threatening, Other)
  Sender: FDA-Public Use
  Company Number: JP-PFIZER INC-2011035810

PATIENT
  Age: 82 Year
  Sex: Male
  Weight: 54 kg

DRUGS (11)
  1. ENBREL [Suspect]
     Indication: RHEUMATOID ARTHRITIS
     Dosage: 25 MG, SINGLE
     Route: 058
     Dates: start: 20101208, end: 20101208
  2. ENBREL [Suspect]
     Dosage: 50 MG, ONCE OR TWICE A WEEK
     Route: 058
     Dates: start: 20101217, end: 20110214
  3. RHEUMATREX [Suspect]
     Indication: RHEUMATOID ARTHRITIS
     Dosage: 2 MG, WEEKLY
     Route: 048
     Dates: start: 20110106, end: 20110204
  4. RHEUMATREX [Suspect]
     Dosage: 4 MG, WEEKLY
     Route: 048
     Dates: start: 20110211, end: 20110211
  5. DEPO-MEDROL [Suspect]
     Indication: RHEUMATOID ARTHRITIS
     Dosage: 20 MG, 2X/WEEK
     Route: 014
     Dates: start: 20101115
  6. PREDONINE [Suspect]
     Indication: RHEUMATOID ARTHRITIS
     Dosage: 10 MG, 1X/DAY
     Route: 048
     Dates: start: 20101115, end: 20110114
  7. PREDONINE [Suspect]
     Dosage: 9 MG, 1X/DAY
     Route: 048
     Dates: start: 20110115, end: 20110128
  8. PREDONINE [Suspect]
     Dosage: 8 MG, 1X/DAY
     Route: 048
     Dates: start: 20110129, end: 20110228
  9. PARIET [Concomitant]
     Indication: GASTROOESOPHAGEAL REFLUX DISEASE
     Dosage: 10 MG, 2X/DAY
     Route: 048
     Dates: start: 20101115
  10. ADALAT L [Concomitant]
     Indication: HYPERTENSION
     Dosage: 20 MG OR 40 MG, A DAY
     Route: 048
     Dates: start: 20101115
  11. MUCOSTA [Concomitant]
     Indication: GASTRITIS
     Dosage: 2 DF, 2X/DAY
     Route: 048
     Dates: start: 20110112

REACTIONS (2)
  - Pneumonia [Recovered/Resolved]
  - Drug effect incomplete [Recovered/Resolved]
